FAERS Safety Report 20085853 (Version 2)
Quarter: 2021Q4

REPORT INFORMATION
  Report Type: Spontaneous
  Country: CN (occurrence: CN)
  Receive Date: 20211118
  Receipt Date: 20211122
  Transmission Date: 20220303
  Serious: Yes (Hospitalization, Disabling, Other)
  Sender: FDA-Public Use
  Company Number: CN-PFIZER INC-202101527898

PATIENT
  Age: 23 Month
  Sex: Male
  Weight: 12 kg

DRUGS (7)
  1. AZITHROMYCIN [Suspect]
     Active Substance: AZITHROMYCIN
     Indication: Anti-infective therapy
     Dosage: 0.125 G, 1X/DAY
     Route: 048
     Dates: start: 20210929, end: 20211001
  2. CEFTRIAXONE SODIUM [Suspect]
     Active Substance: CEFTRIAXONE SODIUM
     Indication: Anti-infective therapy
     Dosage: 0.9 G, 1X/DAY
     Route: 041
     Dates: start: 20210929, end: 20211001
  3. SODIUM CHLORIDE [Concomitant]
     Active Substance: SODIUM CHLORIDE
     Indication: Vehicle solution use
     Dosage: 100 ML, 1X/DAY
     Route: 041
     Dates: start: 20210929, end: 20211001
  4. SODIUM CHLORIDE [Concomitant]
     Active Substance: SODIUM CHLORIDE
     Dosage: 50 ML, 2X/DAY
     Route: 041
     Dates: start: 20210929, end: 20211001
  5. AMBROXOL HYDROCHLORIDE [Concomitant]
     Active Substance: AMBROXOL HYDROCHLORIDE
     Indication: Productive cough
     Dosage: 7.5 MG, 2X/DAY
     Route: 041
     Dates: start: 20210929, end: 20211001
  6. ASCORBIC ACID [Concomitant]
     Active Substance: ASCORBIC ACID
     Indication: Therapeutic procedure
     Dosage: 0.5 G, 1X/DAY
     Route: 041
     Dates: start: 20210929, end: 20211001
  7. DEXTROSE [Concomitant]
     Active Substance: DEXTROSE
     Indication: Vehicle solution use
     Dosage: 100 ML, 1X/DAY
     Route: 041
     Dates: start: 20210929, end: 20211001

REACTIONS (5)
  - Bronchitis [Unknown]
  - Tonsillitis [Unknown]
  - Neutropenia [Unknown]
  - Hepatic function abnormal [Recovering/Resolving]
  - Granulocyte count decreased [Unknown]

NARRATIVE: CASE EVENT DATE: 20210929
